APPROVED DRUG PRODUCT: MERCAPTOPURINE
Active Ingredient: MERCAPTOPURINE
Strength: 50MG
Dosage Form/Route: TABLET;ORAL
Application: A040461 | Product #001 | TE Code: AB
Applicant: DR REDDYS LABORATORIES SA
Approved: Feb 11, 2004 | RLD: No | RS: No | Type: RX